FAERS Safety Report 25347268 (Version 1)
Quarter: 2025Q2

REPORT INFORMATION
  Report Type: Report from Study
  Country: US (occurrence: None)
  Receive Date: 20250522
  Receipt Date: 20250522
  Transmission Date: 20250716
  Serious: Yes (Death, Other)
  Sender: INCYTE
  Company Number: US-INCYTE CORPORATION-2023IN010554

PATIENT
  Age: 89 Year

DRUGS (1)
  1. JAKAFI [Suspect]
     Active Substance: RUXOLITINIB
     Indication: Myelofibrosis
     Dosage: 10 MILLIGRAM, BID

REACTIONS (4)
  - Multiple organ dysfunction syndrome [Fatal]
  - General physical health deterioration [Not Recovered/Not Resolved]
  - Product availability issue [Unknown]
  - Drug ineffective [Not Recovered/Not Resolved]
